FAERS Safety Report 13102819 (Version 3)
Quarter: 2017Q2

REPORT INFORMATION
  Report Type: Report from Study
  Country: None (occurrence: US)
  Receive Date: 20170110
  Receipt Date: 20170525
  Transmission Date: 20170830
  Serious: Yes (Other)
  Sender: FDA-Public Use
  Company Number: US-ABBVIE-17P-163-1830082-00

PATIENT
  Sex: Male

DRUGS (1)
  1. HUMIRA [Suspect]
     Active Substance: ADALIMUMAB
     Indication: EXPOSURE VIA BODY FLUID
     Route: 050

REACTIONS (4)
  - Weight decreased [Recovered/Resolved]
  - Foetal exposure during pregnancy [Unknown]
  - Umbilical cord abnormality [Recovered/Resolved]
  - Paternal drugs affecting foetus [Unknown]

NARRATIVE: CASE EVENT DATE: 201612
